FAERS Safety Report 5919318-6 (Version None)
Quarter: 2008Q4

REPORT INFORMATION
  Report Type: 
  Country: None (occurrence: None)
  Receive Date: 20081015
  Receipt Date: 20081006
  Transmission Date: 20090506
  Serious: Yes (Death, Hospitalization, Disabling)
  Sender: FDA-Public Use
  Company Number: PHBS2007CO19339

PATIENT
  Age: 26 Year
  Sex: Female

DRUGS (4)
  1. GLEEVEC [Suspect]
     Indication: CHRONIC MYELOID LEUKAEMIA
     Dosage: INTERMITTENTLY
     Route: 048
  2. GLEEVEC [Suspect]
     Route: 048
  3. GLEEVEC [Suspect]
     Dosage: 400MG/D
     Route: 048
  4. CARVEDILOL [Concomitant]

REACTIONS (15)
  - CARDIAC FAILURE [None]
  - CHRONIC MYELOID LEUKAEMIA [None]
  - CONGESTIVE CARDIOMYOPATHY [None]
  - DEATH [None]
  - DRUG EXPOSURE DURING PREGNANCY [None]
  - DRUG TOXICITY [None]
  - DYSPNOEA [None]
  - ECHOCARDIOGRAM ABNORMAL [None]
  - LEUKOCYTOSIS [None]
  - NORMAL NEWBORN [None]
  - OEDEMA [None]
  - PULMONARY OEDEMA [None]
  - SPLENECTOMY [None]
  - SPLENOMEGALY [None]
  - TREATMENT NONCOMPLIANCE [None]
